FAERS Safety Report 9186369 (Version 2)
Quarter: 2013Q2

REPORT INFORMATION
  Report Type: Report from Study
  Country: JP (occurrence: JP)
  Receive Date: 20130325
  Receipt Date: 20130529
  Transmission Date: 20140414
  Serious: Yes (Other)
  Sender: FDA-Public Use
  Company Number: JP-ROCHE-1013194

PATIENT
  Age: 60 Year
  Sex: Male
  Weight: 51.75 kg

DRUGS (13)
  1. RIBAVIRIN [Suspect]
     Indication: CHRONIC HEPATITIS C
     Route: 048
     Dates: start: 20110809, end: 20110905
  2. RIBAVIRIN [Suspect]
     Route: 048
     Dates: start: 20110906, end: 20110926
  3. RIBAVIRIN [Suspect]
     Route: 048
     Dates: start: 20111018, end: 20111018
  4. PEG-INTERFERON ALFA 2A [Suspect]
     Indication: CHRONIC HEPATITIS C
     Route: 030
     Dates: start: 20110809, end: 20110920
  5. PEG-INTERFERON ALFA 2A [Suspect]
     Route: 058
     Dates: start: 20111018, end: 20111018
  6. BLINDED BI 201335 (HCV PROTEASE INHIBITOR) [Suspect]
     Indication: CHRONIC HEPATITIS C
     Route: 048
     Dates: start: 20110809, end: 20110926
  7. BLINDED BI 201335 (HCV PROTEASE INHIBITOR) [Suspect]
     Route: 048
     Dates: start: 20111018, end: 20111018
  8. ACINON [Concomitant]
     Route: 048
     Dates: start: 20110809
  9. LOXONIN [Concomitant]
     Indication: PYREXIA
     Route: 048
     Dates: start: 20110811
  10. MUCOSTA [Concomitant]
     Route: 065
     Dates: start: 20110811
  11. ARASENA A [Concomitant]
     Indication: ORAL HERPES
     Route: 065
     Dates: start: 20110823
  12. SEIBULE [Concomitant]
     Indication: TYPE 2 DIABETES MELLITUS
     Route: 048
  13. DEXALTIN [Concomitant]
     Route: 065
     Dates: start: 20110906

REACTIONS (7)
  - Drug eruption [Unknown]
  - Rash [Recovered/Resolved]
  - Eczema asteatotic [Not Recovered/Not Resolved]
  - Fatigue [Recovered/Resolved]
  - Weight decreased [Recovered/Resolved]
  - Pyrexia [Recovered/Resolved]
  - Anaemia [Recovered/Resolved]
